FAERS Safety Report 6160089-9 (Version None)
Quarter: 2009Q2

REPORT INFORMATION
  Report Type: 
  Country: None (occurrence: None)
  Receive Date: 20090415
  Receipt Date: 20090403
  Transmission Date: 20091009
  Serious: Yes (Life-Threatening, Hospitalization)
  Sender: FDA-Public Use
  Company Number: 2009040038

PATIENT
  Age: 79 Year
  Sex: Male
  Weight: 58 kg

DRUGS (11)
  1. TORSEMIDE [Suspect]
     Indication: HYPERTENSION
     Dosage: 10 MG (10 MG,1 IN 1 D),ORAL
     Route: 048
     Dates: end: 20080620
  2. XIPAMIDE [Suspect]
     Indication: HYPERTENSION
     Dosage: 5 MG (5 MG,1 IN 1 D),ORAL
     Route: 048
     Dates: end: 20080620
  3. FALITHROM [Suspect]
     Indication: CARDIAC FAILURE
     Dosage: ORAL
     Route: 048
     Dates: end: 20080620
  4. SPIRONOLACTONE [Concomitant]
  5. RAMIPRIL [Concomitant]
  6. METOCLOPRAMIDE [Concomitant]
  7. PANTOPRAZOLE SODIUM [Concomitant]
  8. METAMIZOL NATRIUM(METAMIZOLE SODIUM) [Concomitant]
  9. ALLOPURINOL [Concomitant]
  10. SIMVASTATIN [Concomitant]
  11. RISPERIDONE [Concomitant]

REACTIONS (18)
  - ACTIVATED PARTIAL THROMBOPLASTIN TIME PROLONGED [None]
  - ATRIAL FIBRILLATION [None]
  - BLOOD CREATININE INCREASED [None]
  - CARDIAC FAILURE [None]
  - DRUG INTERACTION [None]
  - ELECTROLYTE DEPLETION [None]
  - FALL [None]
  - GAMMA-GLUTAMYLTRANSFERASE INCREASED [None]
  - HAEMOGLOBIN DECREASED [None]
  - HYPERTENSION [None]
  - HYPERURICAEMIA [None]
  - HYPOKALAEMIA [None]
  - HYPONATRAEMIA [None]
  - PAIN [None]
  - PROTHROMBIN TIME PROLONGED [None]
  - SYNCOPE [None]
  - TACHYARRHYTHMIA [None]
  - VERTIGO [None]
